FAERS Safety Report 5156796-7 (Version None)
Quarter: 2006Q4

REPORT INFORMATION
  Report Type: 
  Country: None (occurrence: None)
  Receive Date: 20061115
  Receipt Date: 20060518
  Transmission Date: 20070319
  Serious: Yes (Other)
  Sender: FDA-Public Use
  Company Number: 14073

PATIENT
  Age: 76 Year
  Sex: Male
  Weight: 80 kg

DRUGS (12)
  1. PROPOFOL [Suspect]
     Dates: start: 20050826, end: 20050826
  2. GLYCERYL TRINITRATE [Suspect]
  3. SERETIDE ACCUHALER [Concomitant]
  4. ASPIRIN [Concomitant]
  5. GLYCERYL TRINITRATE [Concomitant]
  6. MIDAZOLAM [Suspect]
     Dates: start: 20050826, end: 20050826
  7. FENTANYL [Suspect]
     Dosage: 500 MICROGRAM
     Dates: start: 20050826, end: 20050826
  8. PANCURONIUM BROMIDE [Suspect]
     Dosage: 12 MG ONCE
     Dates: start: 20050826, end: 20050826
  9. VANCOMYCIN HYDROCHLORIDE [Suspect]
     Dosage: 500 MG ONCE
     Dates: start: 20050826, end: 20050826
  10. SIMVASTATIN [Concomitant]
  11. METOPROLOL TARTRATE [Concomitant]
  12. ENOXAPARIN SODIUM [Concomitant]

REACTIONS (2)
  - HYPOTENSION [None]
  - URTICARIA [None]
